FAERS Safety Report 6400508-3 (Version None)
Quarter: 2009Q4

REPORT INFORMATION
  Report Type: 
  Country: None (occurrence: None)
  Receive Date: 20091013
  Receipt Date: 20091013
  Transmission Date: 20100525
  Serious: Yes (Hospitalization)
  Sender: FDA-Public Use
  Company Number: None

PATIENT
  Age: 86 Year
  Sex: Male
  Weight: 91 kg

DRUGS (5)
  1. CUBICIN [Suspect]
     Indication: CELLULITIS
     Dosage: 535MG Q48H IV; 535MG Q24H IV
     Route: 042
     Dates: start: 20090929, end: 20091003
  2. CUBICIN [Suspect]
     Indication: OSTEOMYELITIS
     Dosage: 535MG Q48H IV; 535MG Q24H IV
     Route: 042
     Dates: start: 20090929, end: 20091003
  3. CUBICIN [Suspect]
     Indication: CELLULITIS
     Dosage: 535MG Q48H IV; 535MG Q24H IV
     Route: 042
     Dates: start: 20091003, end: 20091005
  4. CUBICIN [Suspect]
     Indication: OSTEOMYELITIS
     Dosage: 535MG Q48H IV; 535MG Q24H IV
     Route: 042
     Dates: start: 20091003, end: 20091005
  5. CUBICIN [Suspect]

REACTIONS (2)
  - BLOOD CREATINE PHOSPHOKINASE INCREASED [None]
  - FINGER AMPUTATION [None]
